FAERS Safety Report 6654346-7 (Version None)
Quarter: 2010Q1

REPORT INFORMATION
  Report Type: 
  Country: None (occurrence: None)
  Receive Date: 20100326
  Receipt Date: 20100318
  Transmission Date: 20100710
  Serious: Yes (Other)
  Sender: FDA-Public Use
  Company Number: US-AMGEN-QUU394676

PATIENT
  Sex: Male
  Weight: 89.1 kg

DRUGS (7)
  1. ENBREL [Suspect]
     Indication: ANKYLOSING SPONDYLITIS
     Route: 058
     Dates: start: 20090425
  2. NAPROSYN [Concomitant]
     Dates: start: 20071119
  3. XALATAN [Concomitant]
     Dates: start: 20060101
  4. LIDODERM PATCH (ENDO PHARMACEUTICALS) [Concomitant]
     Dates: start: 20071119
  5. COSOPT [Concomitant]
     Dates: start: 20060101
  6. ULTRAM [Concomitant]
     Dates: start: 20070927
  7. PREVACID [Concomitant]
     Dates: start: 20071119

REACTIONS (1)
  - PARKINSON'S DISEASE [None]
